FAERS Safety Report 4357261-7 (Version None)
Quarter: 2004Q2

REPORT INFORMATION
  Report Type: 
  Country: None (occurrence: None)
  Receive Date: 20040513
  Receipt Date: 20030930
  Transmission Date: 20050107
  Serious: Yes (Death, Life-Threatening, Hospitalization)
  Sender: FDA-Public Use
  Company Number: 200321719GDDC

PATIENT
  Age: 68 Year
  Sex: Male

DRUGS (5)
  1. TAXOTERE [Suspect]
     Indication: NON-SMALL CELL LUNG CANCER
     Route: 042
     Dates: start: 20030213, end: 20030527
  2. GLYBURIDE [Concomitant]
     Indication: DIABETES MELLITUS
     Route: 048
     Dates: start: 19870101
  3. GLUCOPHAGE [Concomitant]
     Indication: DIABETES MELLITUS
     Route: 048
     Dates: start: 19870101
  4. NATRILIX [Concomitant]
     Indication: HYPERTENSION
     Route: 048
     Dates: start: 19920101
  5. COVERSYL [Concomitant]
     Indication: HYPERTENSION
     Route: 048
     Dates: start: 19920101

REACTIONS (12)
  - CAPILLARY LEAK SYNDROME [None]
  - DYSPNOEA [None]
  - GENERALISED OEDEMA [None]
  - HYPOPROTEINAEMIA [None]
  - MALIGNANT NEOPLASM PROGRESSION [None]
  - NON-SMALL CELL LUNG CANCER [None]
  - OEDEMA PERIPHERAL [None]
  - RENAL FAILURE [None]
  - RESPIRATORY DISORDER [None]
  - SKIN HYPERPIGMENTATION [None]
  - SKIN ULCER [None]
  - THERMAL BURN [None]
